FAERS Safety Report 4650816-1 (Version None)
Quarter: 2005Q2

REPORT INFORMATION
  Report Type: 
  Country: None (occurrence: None)
  Receive Date: 20050503
  Receipt Date: 20050310
  Transmission Date: 20051028
  Serious: Yes (Death, Other)
  Sender: FDA-Public Use
  Company Number: JP-NOVOPROD-242866

PATIENT
  Age: 20 Year
  Sex: Female

DRUGS (2)
  1. NOVOSEVEN [Suspect]
     Indication: ILL-DEFINED DISORDER
     Dosage: 4.8 MG, EVERY 3 HOURS
     Dates: start: 20050303, end: 20050304
  2. PL GRAN. [Concomitant]
     Dosage: 4.8 MG, EVERY
     Dates: start: 20050303

REACTIONS (2)
  - MULTI-ORGAN FAILURE [None]
  - THERAPEUTIC RESPONSE DECREASED [None]
